FAERS Safety Report 5170015-7 (Version None)
Quarter: 2006Q4

REPORT INFORMATION
  Report Type: 
  Country: None (occurrence: None)
  Receive Date: 20061212
  Receipt Date: 20061208
  Transmission Date: 20070319
  Serious: Yes (Other)
  Sender: FDA-Public Use
  Company Number: DE-GLAXOSMITHKLINE-D0051717A

PATIENT

DRUGS (1)
  1. AUGMENTIN '125' [Suspect]
     Route: 065

REACTIONS (2)
  - HENOCH-SCHONLEIN PURPURA [None]
  - HYPERSENSITIVITY [None]
